FAERS Safety Report 16609954 (Version 11)
Quarter: 2019Q3

REPORT INFORMATION
  Report Type: Spontaneous
  Country: FR (occurrence: FR)
  Receive Date: 20190722
  Receipt Date: 20190919
  Transmission Date: 20191004
  Serious: Yes (Hospitalization, Other)
  Sender: FDA-Public Use
  Company Number: FR-PFIZER INC-2019313005

PATIENT
  Age: 59 Year
  Sex: Female
  Weight: 66 kg

DRUGS (31)
  1. REVATIO [Suspect]
     Active Substance: SILDENAFIL CITRATE
     Indication: PULMONARY ARTERIAL HYPERTENSION
     Dosage: CARDIAC FLUTTER
     Route: 048
     Dates: start: 20190527, end: 20190605
  2. VALACYCLOVIR [Suspect]
     Active Substance: VALACYCLOVIR HYDROCHLORIDE
     Indication: INFECTION PROPHYLAXIS
     Dosage: 1000 MG, QD (500 MILLIGRAM, BID)
     Route: 048
     Dates: start: 20190603
  3. BACTRIM [Suspect]
     Active Substance: SULFAMETHOXAZOLE\TRIMETHOPRIM
     Indication: INFECTION PROPHYLAXIS
     Dosage: 1 DOSAGE FORM, QD
     Route: 048
     Dates: start: 20190529
  4. CELLCEPT [Suspect]
     Active Substance: MYCOPHENOLATE MOFETIL\MYCOPHENOLATE MOFETIL HYDROCHLORIDE
     Dosage: 1440 MG, QD (720 MILLIGRAM, BID)
     Route: 048
     Dates: start: 20190609, end: 20190621
  5. CORDARONE [Suspect]
     Active Substance: AMIODARONE HYDROCHLORIDE
     Indication: ATRIAL FIBRILLATION
     Dosage: 200 MG, QD
     Route: 048
     Dates: start: 2008, end: 20190526
  6. HYDROCORTISONE UPJOHN [Suspect]
     Active Substance: HYDROCORTISONE
     Indication: ADRENAL INSUFFICIENCY
     Dosage: 150 MILLIGRAM, QD
     Route: 042
     Dates: start: 20190607
  7. ENTRESTO [Suspect]
     Active Substance: SACUBITRIL\VALSARTAN
     Indication: HYPERTROPHIC CARDIOMYOPATHY
     Dosage: 1 DF, BID(97 MG/103 MG )
     Route: 048
     Dates: start: 20181220, end: 20190526
  8. INEXIUM [ESOMEPRAZOLE MAGNESIUM] [Suspect]
     Active Substance: ESOMEPRAZOLE MAGNESIUM
     Indication: GASTROOESOPHAGEAL REFLUX DISEASE
     Dosage: 20 MILLIGRAM PER DAY
     Route: 048
     Dates: start: 20190527
  9. PROPOFOL. [Suspect]
     Active Substance: PROPOFOL
     Indication: SEDATION
     Dosage: 100 MILLIGRAM, QH
     Route: 042
     Dates: start: 20190527, end: 20190530
  10. MYFORTIC [Suspect]
     Active Substance: MYCOPHENOLATE SODIUM
     Indication: PROPHYLAXIS AGAINST TRANSPLANT REJECTION
     Dosage: 1440 MG, QD (720 MILLIGRAM, BID)
     Route: 048
     Dates: start: 20190609, end: 20190621
  11. LEVOTHYROX [Suspect]
     Active Substance: LEVOTHYROXINE
     Indication: HYPOTHYROIDISM
     Dosage: 106.25 MICROGRAM PER DAY
     Route: 048
     Dates: start: 2008
  12. ADRENALINE AGUETTANT [Suspect]
     Active Substance: EPINEPHRINE
     Indication: CIRCULATORY COLLAPSE
     Dosage: 0.5 MICROGRAM/KILOGRAM (EVERY 1 MINUTE)
     Route: 042
     Dates: start: 20190527, end: 20190528
  13. REMIFENTANIL MYLAN [Suspect]
     Active Substance: REMIFENTANIL
     Indication: SEDATION
     Dosage: 15 MICROGRAM/KILOGRAM, QH
     Route: 042
     Dates: start: 20190527, end: 20190530
  14. PRAVASTATIN. [Suspect]
     Active Substance: PRAVASTATIN
     Dosage: UNK
  15. ALDACTONE A [Suspect]
     Active Substance: SPIRONOLACTONE
     Indication: HYPERTROPHIC CARDIOMYOPATHY
     Dosage: 25 MILLIGRAM, QD
     Route: 048
     Dates: start: 201902, end: 20190526
  16. CORDARONE [Suspect]
     Active Substance: AMIODARONE HYDROCHLORIDE
     Dosage: 300 MILLIGRAM PER DAY(150 MG/3 ML )
     Route: 042
     Dates: start: 20190529, end: 20190601
  17. ZYLORIC [Suspect]
     Active Substance: ALLOPURINOL
     Indication: HYPERURICAEMIA
     Dosage: 1 DOSAGE FORM, QD
     Route: 048
     Dates: start: 201812, end: 20190526
  18. PRAVASTATIN. [Suspect]
     Active Substance: PRAVASTATIN
     Indication: HYPERCHOLESTEROLAEMIA
     Dosage: 40 MILLIGRAM, QD
     Route: 048
     Dates: start: 20190527, end: 20190625
  19. NEORAL [Suspect]
     Active Substance: CYCLOSPORINE
     Indication: PROPHYLAXIS AGAINST TRANSPLANT REJECTION
     Dosage: 400 MILLIGRAM, QD
     Route: 048
     Dates: start: 20190529
  20. NORADRENALINE MYLAN [Suspect]
     Active Substance: NOREPINEPHRINE\NOREPINEPHRINE BITARTRATE
     Indication: CIRCULATORY COLLAPSE
     Dosage: 1, UNK (1 MICROGRAM PER KILOGRAM EVERY 1 MINUTE )
     Route: 042
     Dates: start: 20190527, end: 20190612
  21. CELLCEPT [Suspect]
     Active Substance: MYCOPHENOLATE MOFETIL\MYCOPHENOLATE MOFETIL HYDROCHLORIDE
     Indication: PROPHYLAXIS AGAINST TRANSPLANT REJECTION
     Dosage: 3000 MILLIGRAM, QD
     Route: 048
     Dates: start: 20190529, end: 20190608
  22. TAHOR [Suspect]
     Active Substance: ATORVASTATIN CALCIUM
     Indication: HYPERCHOLESTEROLAEMIA
     Dosage: 10 MILLIGRAM, QD
     Route: 048
     Dates: start: 201812, end: 20190526
  23. CORTANCYL [Suspect]
     Active Substance: PREDNISONE
     Indication: PROPHYLAXIS AGAINST TRANSPLANT REJECTION
     Dosage: 50 MILLIGRAM, QD
     Route: 048
     Dates: start: 20190527
  24. CORDARONE [Suspect]
     Active Substance: AMIODARONE HYDROCHLORIDE
     Indication: ATRIAL FIBRILLATION
     Dosage: 300 MG, QD
     Route: 042
     Dates: start: 20190529, end: 20190601
  25. STILNOX [Suspect]
     Active Substance: ZOLPIDEM TARTRATE
     Indication: SLEEP DISORDER
     Dosage: 10 MILLIGRAM
     Route: 048
     Dates: start: 20190520, end: 20190526
  26. ENTRESTO [Suspect]
     Active Substance: SACUBITRIL\VALSARTAN
     Dosage: 2 DF, QD (1-0-1)
     Route: 048
     Dates: start: 20181220, end: 20190526
  27. LASILIX FAIBLE [Suspect]
     Active Substance: FUROSEMIDE
     Indication: HYPERTROPHIC CARDIOMYOPATHY
     Dosage: 40 MILLIGRAM PER DAY
     Route: 048
     Dates: start: 2008, end: 20190526
  28. LOVENOX [Suspect]
     Active Substance: ENOXAPARIN SODIUM
     Indication: THROMBOSIS PROPHYLAXIS
     Dosage: 8000 INTERNATIONAL UNIT PER DAY
     Route: 058
     Dates: start: 20190604, end: 20190614
  29. ELIQUIS [Suspect]
     Active Substance: APIXABAN
     Indication: ATRIAL FIBRILLATION
     Dosage: 5 MILLIGRAM, BID
     Route: 048
     Dates: start: 201812, end: 20190526
  30. ELIQUIS [Suspect]
     Active Substance: APIXABAN
     Indication: CEREBROVASCULAR ACCIDENT PROPHYLAXIS
  31. DOBUTAMINE PANPHARMA [Suspect]
     Active Substance: DOBUTAMINE HYDROCHLORIDE
     Indication: CIRCULATORY COLLAPSE
     Dosage: 7 MICROGRAM/KILOGRAM 9EVERY 1 MINUTE)
     Route: 042
     Dates: start: 20190527, end: 20190530

REACTIONS (1)
  - Interstitial lung disease [Recovering/Resolving]

NARRATIVE: CASE EVENT DATE: 20190618
